FAERS Safety Report 12328799 (Version 1)
Quarter: 2016Q2

REPORT INFORMATION
  Report Type: Spontaneous
  Country: US (occurrence: US)
  Receive Date: 20160503
  Receipt Date: 20160503
  Transmission Date: 20160815
  Serious: No
  Sender: FDA-Public Use
  Company Number: US-BEH-2015050879

PATIENT
  Sex: Female
  Weight: 81 kg

DRUGS (23)
  1. TRIAMTERENE HYDROCHLORTHIAZIDE [Concomitant]
     Dosage: 37.5 - 25 MG AS DIRECTED
     Route: 048
  2. MIGLIT [Concomitant]
     Dosage: 40/1100 (1 DOSE AS DIRECTED)
  3. HIZENTRA [Suspect]
     Active Substance: HUMAN IMMUNOGLOBULIN G
     Indication: HYPOGAMMAGLOBULINAEMIA
     Dosage: 4 G 20 ML VIAL
     Route: 058
  4. SYNTHROID [Concomitant]
     Active Substance: LEVOTHYROXINE SODIUM
     Route: 048
  5. LATANOPROST. [Concomitant]
     Active Substance: LATANOPROST
     Dosage: 0.0005% 1 GTT HS (FOR BOTH EYES)
     Route: 047
  6. MULTIVITAMINS [Concomitant]
     Active Substance: VITAMINS
     Route: 048
  7. LEVALBUTEROL HCL [Concomitant]
     Active Substance: LEVALBUTEROL HYDROCHLORIDE
     Dosage: 1.25 MG/3ML VIAL (NEBULIZER)
  8. METOPROLOL TARTRATE. [Concomitant]
     Active Substance: METOPROLOL TARTRATE
     Route: 048
  9. BUDESONIDE. [Concomitant]
     Active Substance: BUDESONIDE
     Dosage: 0.5 MG/2ML (1 DOSE AS NECESSARY) NEBULIZER
  10. LMX [Concomitant]
     Active Substance: LIDOCAINE
     Dosage: 4% AS DIRECTED
     Route: 061
  11. SINGULAIR [Concomitant]
     Active Substance: MONTELUKAST SODIUM
     Route: 048
  12. OXYTROL [Concomitant]
     Active Substance: OXYBUTYNIN
     Dosage: PATCH (3.9 MG/24 HR)
     Route: 061
  13. HIZENTRA [Suspect]
     Active Substance: HUMAN IMMUNOGLOBULIN G
     Indication: HYPOGAMMAGLOBULINAEMIA
     Dosage: 4 G 20 ML VIAL
     Route: 058
  14. ACETAMINOPHEN. [Concomitant]
     Active Substance: ACETAMINOPHEN
     Dosage: AS DIRECTED
     Route: 048
  15. METFORMIN HCL [Concomitant]
     Active Substance: METFORMIN HYDROCHLORIDE
     Route: 048
  16. FLONASE [Concomitant]
     Active Substance: FLUTICASONE PROPIONATE
     Indication: HYPERSENSITIVITY
     Route: 045
  17. ZEAXANTHIN-LUTEIN [Concomitant]
     Dosage: 4-12 MG (1 DOSE AS DIRECTED)
     Route: 048
  18. ZYRTEC [Concomitant]
     Active Substance: CETIRIZINE HYDROCHLORIDE
     Indication: PREMEDICATION
     Dosage: PRIOR
     Route: 048
  19. OMEPRAZOLE. [Concomitant]
     Active Substance: OMEPRAZOLE
     Route: 048
  20. ULTIMATE FLORA WOMENS COMPLETE [Concomitant]
     Dosage: AS DIRECTED
     Route: 048
  21. DIPHENHYDRAMINE. [Concomitant]
     Active Substance: DIPHENHYDRAMINE
     Indication: ANAPHYLACTIC REACTION
     Dosage: AS NECESSARY
     Route: 048
  22. EPIPEN [Concomitant]
     Active Substance: EPINEPHRINE
     Indication: ANAPHYLACTIC REACTION
     Route: 030
  23. LOSARTAN POTASSIUM. [Concomitant]
     Active Substance: LOSARTAN POTASSIUM
     Route: 048

REACTIONS (3)
  - Pyrexia [Recovered/Resolved]
  - Infusion site erythema [Recovered/Resolved]
  - Infusion site pruritus [Recovered/Resolved]
